FAERS Safety Report 20612835 (Version 1)
Quarter: 2022Q1

REPORT INFORMATION
  Report Type: Spontaneous
  Country: US (occurrence: US)
  Receive Date: 20220318
  Receipt Date: 20220318
  Transmission Date: 20220423
  Serious: No
  Sender: FDA-Public Use
  Company Number: US-BIOMARINAP-US-2022-142105

PATIENT
  Age: 19 Year
  Sex: Female
  Weight: 24.943 kg

DRUGS (1)
  1. VIMIZIM [Suspect]
     Active Substance: ELOSULFASE ALFA
     Indication: Mucopolysaccharidosis IV
     Dosage: UNK, QW
     Route: 042

REACTIONS (3)
  - Tooth abscess [Unknown]
  - Toothache [Unknown]
  - Tooth injury [Unknown]

NARRATIVE: CASE EVENT DATE: 20220305
